FAERS Safety Report 16884170 (Version 1)
Quarter: 2019Q4

REPORT INFORMATION
  Report Type: Spontaneous
  Country: US (occurrence: US)
  Receive Date: 20190808
  Receipt Date: 20190808
  Transmission Date: 20200122
  Serious: No
  Sender: FDA-Public Use
  Company Number: None

PATIENT
  Age: 78 Year
  Sex: Female

DRUGS (10)
  1. VELTASSA [Suspect]
     Active Substance: PATIROMER
     Indication: HYPERKALAEMIA
     Route: 048
  2. ALLOPURINOL. [Concomitant]
     Active Substance: ALLOPURINOL
  3. ATENOLOL. [Concomitant]
     Active Substance: ATENOLOL
  4. FISH OIL [Concomitant]
     Active Substance: FISH OIL
  5. VITAMIN B12 [Concomitant]
     Active Substance: CYANOCOBALAMIN
  6. TRIAMCINOLON [Concomitant]
  7. LOSARTAN POT [Concomitant]
     Active Substance: LOSARTAN POTASSIUM
  8. AMLODIPINE [Concomitant]
     Active Substance: AMLODIPINE BESYLATE
  9. CLARITIN [Concomitant]
     Active Substance: LORATADINE
  10. GRAPE SEED [Concomitant]
     Active Substance: HERBALS\VITIS VINIFERA SEED

REACTIONS (2)
  - Product colour issue [None]
  - Pruritus [None]

NARRATIVE: CASE EVENT DATE: 2019
